FAERS Safety Report 16106475 (Version 2)
Quarter: 2025Q1

REPORT INFORMATION
  Report Type: Spontaneous
  Country: DE (occurrence: DE)
  Receive Date: 20190322
  Receipt Date: 20250123
  Transmission Date: 20250409
  Serious: Yes (Hospitalization, Other)
  Sender: TEVA
  Company Number: DE-DCGMA-19180437

PATIENT
  Age: 3 Year
  Sex: Female
  Weight: 11 kg

DRUGS (3)
  1. CYCLOSPORINE [Suspect]
     Active Substance: CYCLOSPORINE
     Indication: Immunosuppression
     Dosage: DAILY DOSE: 56 MG MILLGRAM(S) EVERY DAYS: CICLOSPORIN A
     Route: 048
     Dates: start: 20160414
  2. MAGNESIUM ASPARTATE HYDROCHLORIDE [Concomitant]
     Active Substance: MAGNESIUM ASPARTATE HYDROCHLORIDE
     Indication: Blood magnesium increased
     Dosage: DAILY DOSE: 5 MMOL MILLIMOLE(S) EVERY DAYS
     Route: 048
     Dates: start: 20160414
  3. URSODIOL [Concomitant]
     Active Substance: URSODIOL
     Indication: Congenital absence of bile ducts
     Dosage: DAILY DOSE: 100 MG MILLGRAM(S) EVERY DAYS: 250MG/5ML
     Route: 048
     Dates: start: 20151029

REACTIONS (11)
  - Eating disorder [Recovered/Resolved]
  - Pyrexia [Recovered/Resolved]
  - Vomiting [Recovered/Resolved]
  - Gastroenteritis [Recovered/Resolved]
  - Fluid intake reduced [Recovered/Resolved]
  - Micturition frequency decreased [Recovered/Resolved]
  - Metabolic acidosis [Recovered/Resolved]
  - Hypophagia [Recovered/Resolved]
  - Micturition disorder [Recovered/Resolved]
  - Body temperature abnormal [Recovered/Resolved]
  - Water pollution [Recovered/Resolved]

NARRATIVE: CASE EVENT DATE: 20181024
